FAERS Safety Report 5925281-4 (Version None)
Quarter: 2008Q4

REPORT INFORMATION
  Report Type: 
  Country: None (occurrence: None)
  Receive Date: 20081021
  Receipt Date: 20081015
  Transmission Date: 20090506
  Serious: Yes (Hospitalization)
  Sender: FDA-Public Use
  Company Number: TW-BRISTOL-MYERS SQUIBB COMPANY-14373435

PATIENT
  Age: 28 Year
  Sex: Female

DRUGS (3)
  1. METFORMIN HCL [Suspect]
     Dosage: 1 DF = APPROXIMATELY 80 TABLETS
  2. SODIUM BICARBONATE [Concomitant]
     Dosage: 1 DF = 1 MEQ/KG
     Route: 042
  3. CHARCOAL ACTIVATED [Concomitant]
     Route: 048

REACTIONS (5)
  - INTENTIONAL OVERDOSE [None]
  - LACTIC ACIDOSIS [None]
  - NORMAL NEWBORN [None]
  - PREGNANCY [None]
  - SUICIDE ATTEMPT [None]
